FAERS Safety Report 17740059 (Version 1)
Quarter: 2020Q2

REPORT INFORMATION
  Report Type: Spontaneous
  Country: US (occurrence: US)
  Receive Date: 20200501
  Receipt Date: 20200501
  Transmission Date: 20200714
  Serious: Yes (Hospitalization)
  Sender: FDA-Public Use
  Company Number: None

PATIENT
  Age: 59 Year
  Sex: Male
  Weight: 74 kg

DRUGS (2)
  1. IPILMUMAB (IPILMUMAB 5MG/ML INJ, SOLN, 40ML) [Suspect]
     Active Substance: IPILIMUMAB
     Dosage: ?          OTHER STRENGTH:5MG/ML, 40ML;?
     Dates: start: 20190605, end: 20190806
  2. NIVOLUMAB (NIVOLUMAB 10 MG/ML INJ, SOLN) [Suspect]
     Active Substance: NIVOLUMAB
     Dates: start: 20190605, end: 20190806

REACTIONS (5)
  - Diarrhoea [None]
  - Hypotension [None]
  - Syncope [None]
  - Hypothyroidism [None]
  - Adrenal insufficiency [None]

NARRATIVE: CASE EVENT DATE: 20190904
